FAERS Safety Report 10540109 (Version 1)
Quarter: 2014Q4

REPORT INFORMATION
  Report Type: Spontaneous
  Country: FR (occurrence: FR)
  Receive Date: 20141024
  Receipt Date: 20141024
  Transmission Date: 20150529
  Serious: Yes (Hospitalization)
  Sender: FDA-Public Use
  Company Number: FR-ELI_LILLY_AND_COMPANY-FR201410004490

PATIENT
  Sex: Female

DRUGS (1)
  1. CYMBALTA [Suspect]
     Active Substance: DULOXETINE HYDROCHLORIDE
     Indication: SUICIDE ATTEMPT
     Dosage: 60 MG, QD
     Route: 048
     Dates: start: 20140505, end: 20140606

REACTIONS (4)
  - Generalised oedema [Recovered/Resolved]
  - Ventricular hypokinesia [Unknown]
  - Inappropriate antidiuretic hormone secretion [Recovered/Resolved]
  - Mitral valve incompetence [Unknown]
